FAERS Safety Report 6395153-2 (Version None)
Quarter: 2009Q4

REPORT INFORMATION
  Report Type: 
  Country: None (occurrence: None)
  Receive Date: 20091009
  Receipt Date: 20091004
  Transmission Date: 20100525
  Serious: Yes (Death)
  Sender: FDA-Public Use
  Company Number: US-PFIZER INC-2009258293

PATIENT
  Sex: Male

DRUGS (2)
  1. NORVASC [Suspect]
  2. ZOLOFT [Suspect]

REACTIONS (1)
  - DEATH [None]
